FAERS Safety Report 9178448 (Version 1)
Quarter: 2013Q1

REPORT INFORMATION
  Report Type: Spontaneous
  Country: US (occurrence: US)
  Receive Date: 20130321
  Receipt Date: 20130321
  Transmission Date: 20140127
  Serious: No
  Sender: FDA-Public Use
  Company Number: US-009507513-1303USA010360

PATIENT
  Sex: Female

DRUGS (2)
  1. DR. SCHOLL^S FOR HER RUB RELIEF STICK [Suspect]
     Indication: PRODUCT USED FOR UNKNOWN INDICATION
     Dosage: UNK, UNKNOWN
     Route: 061
     Dates: start: 2012, end: 2012
  2. DR. SCHOLL^S FOR HER RUB RELIEF STICK [Suspect]
     Dosage: UNK, UNKNOWN
     Route: 061
     Dates: start: 2012, end: 2012

REACTIONS (1)
  - Rash [Recovered/Resolved]
